FAERS Safety Report 7434827-9 (Version None)
Quarter: 2011Q2

REPORT INFORMATION
  Report Type: 
  Country: None (occurrence: None)
  Receive Date: 20110425
  Receipt Date: 20110413
  Transmission Date: 20111010
  Serious: Yes (Hospitalization)
  Sender: FDA-Public Use
  Company Number: JP-ASTRAZENECA-2011SE22802

PATIENT
  Age: 81 Year
  Sex: Female

DRUGS (9)
  1. SEROQUEL [Suspect]
     Indication: RESTLESSNESS
     Route: 048
     Dates: end: 20110408
  2. YOKUKAN-SAN [Concomitant]
     Route: 048
  3. EXCEGRAN [Concomitant]
     Route: 048
  4. SEROQUEL [Suspect]
     Indication: DELIRIUM
     Route: 048
     Dates: end: 20110408
  5. RISPERDAL [Suspect]
     Route: 048
     Dates: end: 20110408
  6. ROCEPHIN [Concomitant]
  7. LASIX [Concomitant]
  8. SPIRONOLACTONE [Concomitant]
  9. DIOVAN [Concomitant]
     Route: 048

REACTIONS (4)
  - ASPARTATE AMINOTRANSFERASE INCREASED [None]
  - OFF LABEL USE [None]
  - ALANINE AMINOTRANSFERASE INCREASED [None]
  - HYPOGLYCAEMIA [None]
